FAERS Safety Report 4396283-7 (Version None)
Quarter: 2004Q3

REPORT INFORMATION
  Report Type: 
  Country: None (occurrence: None)
  Receive Date: 20040713
  Receipt Date: 20040317
  Transmission Date: 20050211
  Serious: Yes (Hospitalization)
  Sender: FDA-Public Use
  Company Number: US-GLAXOSMITHKLINE-A0503231A

PATIENT
  Age: 11 Year
  Sex: Female

DRUGS (2)
  1. PAXIL [Suspect]
     Indication: GENERALISED ANXIETY DISORDER
     Route: 048
  2. ATARAX [Concomitant]
     Dosage: 25MG AT NIGHT
     Route: 048
     Dates: end: 20000401

REACTIONS (8)
  - ANXIETY [None]
  - BLOOD ELECTROLYTES ABNORMAL [None]
  - DISORIENTATION [None]
  - DIZZINESS [None]
  - GRAND MAL CONVULSION [None]
  - HOSTILITY [None]
  - LOSS OF CONSCIOUSNESS [None]
  - SUICIDAL IDEATION [None]
